FAERS Safety Report 13694274 (Version 1)
Quarter: 2017Q2

REPORT INFORMATION
  Report Type: Spontaneous
  Country: US (occurrence: US)
  Receive Date: 20170627
  Receipt Date: 20170627
  Transmission Date: 20170830
  Serious: Yes (Hospitalization, Other)
  Sender: FDA-Public Use
  Company Number: US-HERITAGE PHARMACEUTICALS-2017HTG00158

PATIENT
  Sex: Female
  Weight: 73.92 kg

DRUGS (3)
  1. HYDRALAZINE HYDROCHLORIDE. [Suspect]
     Active Substance: HYDRALAZINE HYDROCHLORIDE
     Indication: HYPERTENSION
     Dosage: 150 MG, 3X/DAY
     Route: 048
     Dates: start: 2014
  2. AMILORIDE [Concomitant]
     Active Substance: AMILORIDE
  3. HYDRALAZINE HYDROCHLORIDE. [Suspect]
     Active Substance: HYDRALAZINE HYDROCHLORIDE
     Dosage: 100 MG, 2X/DAY
     Route: 048

REACTIONS (10)
  - Pneumonia [Unknown]
  - Vasculitis [Not Recovered/Not Resolved]
  - Blood blister [Not Recovered/Not Resolved]
  - Gait disturbance [Unknown]
  - Kidney infection [Unknown]
  - Rash [Not Recovered/Not Resolved]
  - Blood disorder [Not Recovered/Not Resolved]
  - Asthenia [Not Recovered/Not Resolved]
  - Hypersensitivity [Not Recovered/Not Resolved]
  - Vocal cord disorder [Unknown]

NARRATIVE: CASE EVENT DATE: 2016
